FAERS Safety Report 12781681 (Version 1)
Quarter: 2016Q3

REPORT INFORMATION
  Report Type: Spontaneous
  Country: FR (occurrence: FR)
  Receive Date: 20160926
  Receipt Date: 20160926
  Transmission Date: 20161109
  Serious: Yes (Hospitalization)
  Sender: FDA-Public Use
  Company Number: PHHY2016FR129678

PATIENT
  Sex: Female

DRUGS (3)
  1. CURCUMA LONGA [Suspect]
     Active Substance: TURMERIC
     Indication: OSTEOARTHRITIS
     Dosage: UNK UNK, QD
     Route: 048
     Dates: start: 20150101, end: 20160806
  2. HARPAGOPHYTUM PROCUMBENS [Concomitant]
     Active Substance: HARPAGOPHYTUM PROCUMBENS ROOT
     Indication: OSTEOARTHRITIS
     Route: 065
  3. FEMARA [Suspect]
     Active Substance: LETROZOLE
     Indication: PRODUCT USED FOR UNKNOWN INDICATION
     Dosage: 2.5 MG, QD
     Route: 048
     Dates: start: 20150701

REACTIONS (3)
  - Anaemia macrocytic [Recovering/Resolving]
  - Neutropenia [Recovered/Resolved]
  - Blood folate decreased [Recovering/Resolving]

NARRATIVE: CASE EVENT DATE: 2016
